FAERS Safety Report 4830630-4 (Version None)
Quarter: 2005Q4

REPORT INFORMATION
  Report Type: 
  Country: None (occurrence: None)
  Receive Date: 20051114
  Receipt Date: 20051025
  Transmission Date: 20060501
  Serious: Yes (Hospitalization)
  Sender: FDA-Public Use
  Company Number: 430014E05GBR

PATIENT
  Age: 66 Year
  Sex: Female

DRUGS (11)
  1. NOVANTRONE [Suspect]
     Dosage: 22 MG 1 IN 1 DAYS INTRAVENOUS
     Route: 042
     Dates: start: 20050927, end: 20050927
  2. FLUDARABINE [Suspect]
     Dosage: 45 MG 1 IN 1 DAYS INTRAVENOUS
     Route: 042
     Dates: start: 20050927, end: 20050927
  3. ACETAMINOPHEN [Concomitant]
  4. ALLOPURINOL [Concomitant]
  5. OMEPRAZOLE [Concomitant]
  6. BARANO [Concomitant]
  7. CHLORHEXIDINE [Concomitant]
  8. BENZYDAMINE [Concomitant]
  9. DEXAMETHASONE [Concomitant]
  10. MORPHINE SULFATE [Concomitant]
  11. GRANISETRON [Concomitant]

REACTIONS (2)
  - DYSPNOEA [None]
  - PLEURAL EFFUSION [None]
